FAERS Safety Report 6386208-7 (Version None)
Quarter: 2009Q3

REPORT INFORMATION
  Report Type: 
  Country: None (occurrence: None)
  Receive Date: 20090929
  Receipt Date: 20090105
  Transmission Date: 20100115
  Serious: Yes (Other)
  Sender: FDA-Public Use
  Company Number: 14428817

PATIENT
  Age: 60 Year
  Sex: Male
  Weight: 98 kg

DRUGS (14)
  1. DEFINITY [Suspect]
     Indication: ECHOCARDIOGRAM
     Dosage: 2 ML
     Dates: start: 20081202
  2. ASPIRIN [Concomitant]
  3. COREG [Concomitant]
  4. DIGOXIN [Concomitant]
  5. NEURONTIN [Concomitant]
  6. NPH INSULIN [Concomitant]
  7. INSULIN LISPRO [Concomitant]
  8. IMDUR [Concomitant]
  9. LISINOPRIL [Concomitant]
  10. PREDNISONE [Concomitant]
  11. ZANTAC [Concomitant]
  12. ZOLOFT [Concomitant]
  13. SIMVASTATIN [Concomitant]
  14. SPIRONOLACTONE [Concomitant]

REACTIONS (5)
  - BRADYCARDIA [None]
  - DEFAECATION URGENCY [None]
  - HYPERHIDROSIS [None]
  - HYPOTENSION [None]
  - NAUSEA [None]
